FAERS Safety Report 10058349 (Version 1)
Quarter: 2014Q2

REPORT INFORMATION
  Report Type: Spontaneous
  Country: US (occurrence: US)
  Receive Date: 20140404
  Receipt Date: 20140404
  Transmission Date: 20141212
  Serious: Yes (Hospitalization)
  Sender: FDA-Public Use
  Company Number: US-SUN PHARMACEUTICAL INDUSTRIES LTD-2014SUN00718

PATIENT
  Age: 39 Year
  Sex: Male

DRUGS (10)
  1. DIVALPROEX SODIUM DR TABS 125MG [Suspect]
     Indication: EPILEPSY
     Dosage: UNK
     Route: 065
  2. AZITHROMYCIN [Suspect]
     Indication: MYCOBACTERIUM AVIUM COMPLEX INFECTION
     Dosage: UNK
     Route: 065
  3. AZITHROMYCIN [Suspect]
     Indication: TOXOPLASMOSIS
     Dosage: UNK
     Route: 065
  4. ETHAMBUTOL [Suspect]
     Indication: MYCOBACTERIUM AVIUM COMPLEX INFECTION
     Route: 065
  5. ETHAMBUTOL [Suspect]
     Indication: TOXOPLASMOSIS PROPHYLAXIS
     Dosage: UNK
     Route: 065
  6. DAPSONE [Suspect]
     Indication: PRODUCT USED FOR UNKNOWN INDICATION
     Route: 065
  7. TENOFOVIR [Suspect]
     Indication: HIV INFECTION
  8. EMTRICITABINE [Suspect]
     Indication: HIV INFECTION
  9. LOPINAVIR/RITONAVIR [Suspect]
     Indication: HIV INFECTION
  10. CEFEPIME [Suspect]
     Indication: PNEUMONIA

REACTIONS (1)
  - Vanishing bile duct syndrome [Unknown]
